FAERS Safety Report 9199971 (Version 3)
Quarter: 2013Q2

REPORT INFORMATION
  Report Type: Spontaneous
  Country: ES (occurrence: ES)
  Receive Date: 20130329
  Receipt Date: 20130418
  Transmission Date: 20140414
  Serious: Yes (Death, Hospitalization)
  Sender: FDA-Public Use
  Company Number: ES-ROCHE-1207519

PATIENT
  Age: 54 Year
  Sex: Male
  Weight: 68 kg

DRUGS (14)
  1. AVASTIN [Suspect]
     Indication: GLIOBLASTOMA MULTIFORME
     Dosage: FIRST CYCLE
     Route: 042
     Dates: start: 20130219
  2. IRINOTECAN [Suspect]
     Indication: GLIOBLASTOMA MULTIFORME
     Route: 042
     Dates: start: 20130219
  3. TEMOZOLOMIDE [Concomitant]
     Dosage: DAILY
     Route: 065
     Dates: start: 20120819, end: 20121016
  4. TEMOZOLOMIDE [Concomitant]
     Dosage: FOR FIRST CYCLE  (1-4 CYLES)
     Route: 065
     Dates: start: 20121105, end: 20130131
  5. TEMOZOLOMIDE [Concomitant]
     Dosage: DOSE INCREASED FROM SECOND CYCLE  (1-4 CYLES)
     Route: 065
     Dates: start: 20121105, end: 20130131
  6. LEVETIRACETAM [Concomitant]
     Indication: CONVULSION
     Route: 048
     Dates: start: 201206, end: 201302
  7. FORTECORTIN [Concomitant]
     Indication: BRAIN OEDEMA
     Route: 048
     Dates: start: 201206, end: 201302
  8. PANTOPRAZOL [Concomitant]
     Indication: PROPHYLAXIS AGAINST GASTROINTESTINAL ULCER
     Route: 048
     Dates: start: 201206, end: 201302
  9. ENALAPRIL [Concomitant]
     Indication: HYPERTENSION
     Route: 048
     Dates: start: 201206, end: 201302
  10. SERTRALINA [Concomitant]
     Route: 065
  11. METFORMIN [Concomitant]
     Indication: DIABETES MELLITUS
     Route: 048
  12. LEXATIN [Concomitant]
     Route: 065
  13. AUGMENTIN [Concomitant]
     Dosage: 875/125
     Route: 065
  14. CLEXANE [Concomitant]
     Route: 065

REACTIONS (5)
  - Large intestine perforation [Fatal]
  - Duodenal perforation [Recovered/Resolved]
  - Diarrhoea [Recovered/Resolved]
  - Abdominal distension [Recovered/Resolved]
  - Constipation [Recovered/Resolved]
